FAERS Safety Report 9233411 (Version 1)
Quarter: 2013Q2

REPORT INFORMATION
  Report Type: Spontaneous
  Country: US (occurrence: US)
  Receive Date: 20130416
  Receipt Date: 20130416
  Transmission Date: 20140414
  Serious: Yes (Other)
  Sender: FDA-Public Use
  Company Number: US-PFIZER INC-2013118454

PATIENT
  Sex: Female

DRUGS (1)
  1. XANAX XR [Suspect]
     Indication: ANXIETY
     Dosage: UNK

REACTIONS (1)
  - Nervous system disorder [Unknown]
